FAERS Safety Report 7206474-5 (Version None)
Quarter: 2011Q1

REPORT INFORMATION
  Report Type: 
  Country: None (occurrence: None)
  Receive Date: 20110103
  Receipt Date: 20101229
  Transmission Date: 20110831
  Serious: Yes (Death, Hospitalization)
  Sender: FDA-Public Use
  Company Number: GB-PFIZER INC-2008039218

PATIENT
  Age: 91 Year
  Sex: Male

DRUGS (1)
  1. SUNITINIB MALATE [Suspect]
     Indication: RENAL CELL CARCINOMA
     Dosage: 25 MG, CYCLIC  (ONCE DAILY)
     Route: 048
     Dates: start: 20060630, end: 20080417

REACTIONS (3)
  - DIARRHOEA [None]
  - VOMITING [None]
  - LOWER RESPIRATORY TRACT INFECTION [None]
